FAERS Safety Report 18546615 (Version 1)
Quarter: 2020Q4

REPORT INFORMATION
  Report Type: Spontaneous
  Country: US (occurrence: US)
  Receive Date: 20201125
  Receipt Date: 20201125
  Transmission Date: 20210114
  Serious: No
  Sender: FDA-Public Use
  Company Number: US-JNJFOC-20201126131

PATIENT
  Age: 67 Year
  Sex: Male

DRUGS (4)
  1. BENZTROPINE [BENZATROPINE] [Suspect]
     Active Substance: BENZTROPINE
     Indication: SCHIZOPHRENIA
     Dosage: INCREASING DOSES OVER A PERIOD OF MONTHS
     Route: 048
  2. HALDOL DECANOATE [Suspect]
     Active Substance: HALOPERIDOL DECANOATE
     Indication: SCHIZOPHRENIA
     Route: 030
  3. BENZTROPINE [BENZATROPINE] [Suspect]
     Active Substance: BENZTROPINE
     Dosage: TWO TIMES A DAY AS NEEDED; AS REQUIRED
     Route: 048
  4. BENZTROPINE [BENZATROPINE] [Suspect]
     Active Substance: BENZTROPINE
     Dosage: DOUBLE HIS PRESCRIBED DOSE PER DAY
     Route: 048

REACTIONS (1)
  - Constipation [Recovered/Resolved]
